FAERS Safety Report 25111219 (Version 1)
Quarter: 2025Q1

REPORT INFORMATION
  Report Type: Spontaneous
  Country: AT (occurrence: AT)
  Receive Date: 20250324
  Receipt Date: 20250324
  Transmission Date: 20250408
  Serious: Yes (Other)
  Sender: CELLTRION
  Company Number: AT-AMGEN-AUTSP2024189007

PATIENT

DRUGS (1)
  1. ADALIMUMAB [Suspect]
     Active Substance: ADALIMUMAB
     Indication: Polychondritis
     Route: 065

REACTIONS (3)
  - Myelodysplastic syndrome [Unknown]
  - VEXAS syndrome [Unknown]
  - Off label use [Unknown]
